FAERS Safety Report 8321786-X (Version None)
Quarter: 2012Q1

REPORT INFORMATION
  Report Type: 
  Country: None (occurrence: None)
  Receive Date: 20120315
  Receipt Date: 20110315
  Transmission Date: 20120608
  Serious: No
  Sender: FDA-Public Use
  Company Number: PHHY2011US12522

PATIENT
  Sex: Female

DRUGS (1)
  1. GILENYA [Suspect]
     Indication: MULTIPLE SCLEROSIS
     Dosage: ORAL
     Route: 048
     Dates: start: 20110107

REACTIONS (6)
  - PAIN [None]
  - PYREXIA [None]
  - FATIGUE [None]
  - ABDOMINAL DISCOMFORT [None]
  - DIZZINESS [None]
  - HEART RATE INCREASED [None]
